FAERS Safety Report 7621417-8 (Version None)
Quarter: 2011Q3

REPORT INFORMATION
  Report Type: 
  Country: None (occurrence: None)
  Receive Date: 20110719
  Receipt Date: 20110602
  Transmission Date: 20111222
  Serious: No
  Sender: FDA-Public Use
  Company Number: US-MYLANLABS-2011S1011600

PATIENT
  Age: 51 Year
  Sex: Female
  Weight: 54.43 kg

DRUGS (9)
  1. ERYTHROMYCIN [Concomitant]
     Indication: ABDOMINAL DISCOMFORT
  2. DIVALPROEX SODIUM EXTENDED RELEASE [Suspect]
     Dosage: 1 TABLET QAM + 1 TABLET HS
     Dates: start: 20110301, end: 20110501
  3. HYDROCODONE [Concomitant]
  4. NEURONTIN [Concomitant]
     Indication: NEURALGIA
  5. NEXIUM [Concomitant]
     Indication: ABDOMINAL DISCOMFORT
  6. DIVALPROEX SODIUM EXTENDED RELEASE [Suspect]
     Indication: NEURALGIA
     Dosage: 1 TABLET QAM + 2 TABLETS QPM
     Dates: start: 20110201, end: 20110301
  7. DIVALPROEX SODIUM EXTENDED RELEASE [Suspect]
     Dates: start: 20110501
  8. ESTRADIOL [Concomitant]
     Indication: HORMONE REPLACEMENT THERAPY
  9. FROVA [Concomitant]
     Indication: MIGRAINE

REACTIONS (2)
  - WEIGHT INCREASED [None]
  - INCREASED APPETITE [None]
